FAERS Safety Report 9720700 (Version 1)
Quarter: 2013Q4

REPORT INFORMATION
  Report Type: Report from Study
  Country: US (occurrence: US)
  Receive Date: 20131129
  Receipt Date: 20131129
  Transmission Date: 20140711
  Serious: Yes (Other)
  Sender: FDA-Public Use
  Company Number: PHEH2013US024920

PATIENT
  Sex: Female

DRUGS (5)
  1. EXELON PATCH [Suspect]
     Dosage: UNK UKN, UNK
  2. METOPROLOL [Suspect]
     Dosage: UNK UKN, UNK
  3. HYDROCHLOROTHIAZIDE [Suspect]
     Dosage: UNK UKN, UNK
  4. LIPITOR [Suspect]
     Dosage: UNK UKN, UNK
  5. MAXZIDE [Suspect]
     Dosage: UNK UKN, UNK

REACTIONS (5)
  - Cerebrovascular accident [Not Recovered/Not Resolved]
  - Myocardial infarction [Not Recovered/Not Resolved]
  - Diabetes mellitus [Not Recovered/Not Resolved]
  - Blood glucose increased [Not Recovered/Not Resolved]
  - Memory impairment [Not Recovered/Not Resolved]
